FAERS Safety Report 10465661 (Version 1)
Quarter: 2014Q3

REPORT INFORMATION
  Report Type: Spontaneous
  Country: US (occurrence: US)
  Receive Date: 20140919
  Receipt Date: 20140919
  Transmission Date: 20150326
  Serious: Yes (Death, Hospitalization, Other)
  Sender: FDA-Public Use
  Company Number: US-B.I. PHARMACEUTICALS,INC./RIDGEFIELD-2014-BI-44252BP

PATIENT
  Age: 66 Year
  Sex: Male

DRUGS (3)
  1. ASPIRIN. [Suspect]
     Active Substance: ASPIRIN
     Indication: PRODUCT USED FOR UNKNOWN INDICATION
     Route: 065
  2. PRADAXA [Suspect]
     Active Substance: DABIGATRAN ETEXILATE MESYLATE
     Indication: PRODUCT USED FOR UNKNOWN INDICATION
     Route: 065
  3. PLAVIX [Suspect]
     Active Substance: CLOPIDOGREL BISULFATE
     Indication: PRODUCT USED FOR UNKNOWN INDICATION
     Route: 065

REACTIONS (11)
  - Vena cava thrombosis [Unknown]
  - Atrial fibrillation [Unknown]
  - Respiratory failure [Fatal]
  - Diffuse alveolar damage [Recovered/Resolved]
  - Coagulopathy [Unknown]
  - Hypotension [Unknown]
  - Pulmonary embolism [Fatal]
  - Septic shock [Unknown]
  - Cardiac failure acute [Unknown]
  - Jugular vein thrombosis [Unknown]
  - Renal failure acute [Unknown]

NARRATIVE: CASE EVENT DATE: 201304
